FAERS Safety Report 5505908-1 (Version None)
Quarter: 2007Q4

REPORT INFORMATION
  Report Type: 
  Country: None (occurrence: None)
  Receive Date: 20071102
  Receipt Date: 20071023
  Transmission Date: 20080405
  Serious: Yes (Death, Other)
  Sender: FDA-Public Use
  Company Number: FR-PFIZER INC-2007091007

PATIENT
  Sex: Male

DRUGS (4)
  1. CHAMPIX [Suspect]
     Indication: SMOKING CESSATION THERAPY
     Route: 048
     Dates: start: 20070907, end: 20070925
  2. URBANYL [Interacting]
     Indication: ANXIETY
     Dosage: DAILY DOSE:5MG
     Route: 048
     Dates: start: 20070924, end: 20070925
  3. URBANYL [Interacting]
     Indication: SLEEP DISORDER
  4. ALCOHOL [Interacting]

REACTIONS (6)
  - AGGRESSION [None]
  - ANGER [None]
  - COMPLETED SUICIDE [None]
  - DELIRIUM [None]
  - DRUG INTERACTION [None]
  - NERVOUSNESS [None]
